APPROVED DRUG PRODUCT: LURASIDONE HYDROCHLORIDE
Active Ingredient: LURASIDONE HYDROCHLORIDE
Strength: 60MG
Dosage Form/Route: TABLET;ORAL
Application: A208016 | Product #003
Applicant: WATSON LABORATORIES INC AN INDIRECT WHOLLY OWNED SUB OF TEVA PHARMACEUTICALS USA INC
Approved: Feb 2, 2021 | RLD: No | RS: No | Type: DISCN